FAERS Safety Report 9028617 (Version 1)
Quarter: 2013Q1

REPORT INFORMATION
  Report Type: Spontaneous
  Country: BR (occurrence: BR)
  Receive Date: 20130124
  Receipt Date: 20130124
  Transmission Date: 20140127
  Serious: Yes (Hospitalization)
  Sender: FDA-Public Use
  Company Number: BR-009507513-1301BRA010720

PATIENT
  Age: 70 None
  Sex: Female
  Weight: 73 kg

DRUGS (2)
  1. NASONEX [Suspect]
     Indication: SINUSITIS
     Dosage: UNK
     Route: 045
     Dates: start: 1992, end: 2001
  2. NASONEX [Suspect]
     Indication: INFLUENZA
     Dosage: UNK UNK, BID
     Route: 045
     Dates: start: 20130117, end: 20130118

REACTIONS (8)
  - Surgery [Unknown]
  - Hypothyroidism [Not Recovered/Not Resolved]
  - Osteopenia [Not Recovered/Not Resolved]
  - Sinusitis [Not Recovered/Not Resolved]
  - Drug administration error [Unknown]
  - Therapy cessation [Unknown]
  - Product quality issue [Unknown]
  - Off label use [Unknown]
